FAERS Safety Report 13784986 (Version 2)
Quarter: 2019Q1

REPORT INFORMATION
  Report Type: Spontaneous
  Country: US (occurrence: US)
  Receive Date: 20170724
  Receipt Date: 20190303
  Transmission Date: 20190417
  Serious: No
  Sender: FDA-Public Use
  Company Number: US-IMPAX LABORATORIES, INC-2017-IPXL-02100

PATIENT
  Age: 62 Year
  Sex: Male

DRUGS (1)
  1. RYTARY [Suspect]
     Active Substance: CARBIDOPA\LEVODOPA
     Indication: PARKINSON^S DISEASE
     Dosage: 48.75/195MG,  2 CAPSULES 4 TIMES DAILY
     Route: 048

REACTIONS (3)
  - Sluggishness [Recovering/Resolving]
  - Laziness [Recovered/Resolved]
  - Somnolence [Recovered/Resolved]
